FAERS Safety Report 24060362 (Version 3)
Quarter: 2024Q3

REPORT INFORMATION
  Report Type: Spontaneous
  Country: TR (occurrence: TR)
  Receive Date: 20240708
  Receipt Date: 20240805
  Transmission Date: 20241016
  Serious: Yes (Other)
  Sender: MYLAN
  Company Number: TR-MYLANLABS-2024M1061325

PATIENT
  Sex: Female

DRUGS (4)
  1. XANAX [Suspect]
     Active Substance: ALPRAZOLAM
     Indication: Bipolar disorder
     Dosage: 0.5 MILLIGRAM, QD (PER DAY)
     Route: 065
  2. XANAX [Suspect]
     Active Substance: ALPRAZOLAM
     Dosage: 1 MILLIGRAM, BID (DURING THE DAY AND IN THE EVENING, 2 MG IN TOTAL)
     Route: 065
  3. XANAX [Suspect]
     Active Substance: ALPRAZOLAM
     Dosage: 3 MILLIGRAM, QD
     Route: 065
  4. LITHIUM [Concomitant]
     Active Substance: LITHIUM
     Indication: Bipolar disorder
     Dosage: UNK
     Route: 065

REACTIONS (4)
  - Hallucination, visual [Not Recovered/Not Resolved]
  - Visual impairment [Not Recovered/Not Resolved]
  - Dizziness [Not Recovered/Not Resolved]
  - Off label use [Unknown]
